FAERS Safety Report 8087019-7 (Version None)
Quarter: 2012Q1

REPORT INFORMATION
  Report Type: 
  Country: None (occurrence: None)
  Receive Date: 20120128
  Receipt Date: 20110522
  Transmission Date: 20120608
  Serious: No
  Sender: FDA-Public Use
  Company Number: US-ABBOTT-11P-163-0727624-00

PATIENT
  Age: 69 Year
  Sex: Female

DRUGS (9)
  1. CARVEDILOL [Concomitant]
     Indication: BLOOD PRESSURE
  2. FEXOFENADINE [Concomitant]
     Indication: HYPERSENSITIVITY
  3. GABAPENTIN [Concomitant]
     Indication: ANXIETY
  4. CALCIUM CARBONATE [Concomitant]
     Indication: PHOSPHORUS METABOLISM DISORDER
     Dosage: WITH EVERY MEAL
  5. LEVOTHYROXINE SODIUM [Concomitant]
     Indication: THYROID FUNCTION TEST ABNORMAL
  6. CLOBETASOL 0.05% [Concomitant]
     Indication: PRURITUS
  7. HUMIRA [Suspect]
     Indication: PSORIASIS
     Dates: start: 20110319
  8. PLAVIX [Concomitant]
     Indication: PRODUCT USED FOR UNKNOWN INDICATION
     Dosage: ONE PILL DAILY
  9. LISINOPRIL [Concomitant]
     Indication: HYPERTENSION

REACTIONS (2)
  - INJECTION SITE NODULE [None]
  - MYALGIA [None]
